FAERS Safety Report 25330207 (Version 2)
Quarter: 2025Q2

REPORT INFORMATION
  Report Type: Spontaneous
  Country: UA (occurrence: UA)
  Receive Date: 20250519
  Receipt Date: 20250520
  Transmission Date: 20250717
  Serious: Yes (Death, Life-Threatening, Hospitalization)
  Sender: MACLEODS
  Company Number: UA-MACLEODS PHARMA-MAC2025053076

PATIENT

DRUGS (4)
  1. LIDOCAINE [Suspect]
     Active Substance: LIDOCAINE
     Indication: Product used for unknown indication
     Route: 030
  2. CEFTRIAXONE [Suspect]
     Active Substance: CEFTRIAXONE
     Indication: Bacterial infection
     Route: 030
  3. CEFTRIAXONE [Suspect]
     Active Substance: CEFTRIAXONE
     Indication: Evidence based treatment
  4. CEFTRIAXONE [Suspect]
     Active Substance: CEFTRIAXONE
     Indication: Antibiotic therapy

REACTIONS (18)
  - Kounis syndrome [Fatal]
  - Subendocardial ischaemia [Fatal]
  - Multiple organ dysfunction syndrome [Fatal]
  - Sepsis [Fatal]
  - Anaphylactic shock [Fatal]
  - Pneumonia necrotising [Fatal]
  - Lung abscess [Fatal]
  - Toxic shock syndrome [Fatal]
  - Respiratory failure [Fatal]
  - Pneumonia bacterial [Fatal]
  - Thrombosis [Fatal]
  - Vasculitis [Fatal]
  - Waterhouse-Friderichsen syndrome [Fatal]
  - Brain oedema [Fatal]
  - Brain oedema [Fatal]
  - Periventricular leukomalacia [Fatal]
  - Pulmonary oedema [Fatal]
  - Thymus hypoplasia [Fatal]
